FAERS Safety Report 24842225 (Version 1)
Quarter: 2025Q1

REPORT INFORMATION
  Report Type: Spontaneous
  Country: US (occurrence: US)
  Receive Date: 20250115
  Receipt Date: 20250115
  Transmission Date: 20250409
  Serious: No
  Sender: SANOFI AVENTIS
  Company Number: US-SA-2025SA010894

PATIENT
  Age: 66 Year
  Sex: Male

DRUGS (13)
  1. DUPIXENT [Suspect]
     Active Substance: DUPILUMAB
     Indication: Chronic obstructive pulmonary disease
     Dosage: 300 MG, QOW
     Route: 058
  2. ASPIRIN [Concomitant]
     Active Substance: ASPIRIN
  3. AZITHROMYCIN [Concomitant]
     Active Substance: AZITHROMYCIN
  4. BUDESONIDE [Concomitant]
     Active Substance: BUDESONIDE
  5. ROFLUMILAST [Concomitant]
     Active Substance: ROFLUMILAST
  6. ALBUTEROL SULFATE [Concomitant]
     Active Substance: ALBUTEROL SULFATE
  7. ATORVASTATIN [Concomitant]
     Active Substance: ATORVASTATIN
  8. DOXYCYCLINE [Concomitant]
     Active Substance: DOXYCYCLINE
  9. EZETIMIBE [Concomitant]
     Active Substance: EZETIMIBE
  10. IPRATROPIUM [Concomitant]
     Active Substance: IPRATROPIUM
  11. PREDNISONE [Concomitant]
     Active Substance: PREDNISONE
  12. TRELEGY ELLIPTA [Concomitant]
     Active Substance: FLUTICASONE FUROATE\UMECLIDINIUM BROMIDE\VILANTEROL TRIFENATATE
  13. VARENICLINE [Concomitant]
     Active Substance: VARENICLINE

REACTIONS (3)
  - Illness [Unknown]
  - Cough [Unknown]
  - Arthralgia [Unknown]

NARRATIVE: CASE EVENT DATE: 20241225
